FAERS Safety Report 8803103 (Version 1)
Quarter: 2012Q4

REPORT INFORMATION
  Report Type: 
  Country: NL (occurrence: NL)
  Receive Date: 20120924
  Receipt Date: 20120924
  Transmission Date: 20130627
  Serious: Yes (Hospitalization)
  Sender: FDA-Public Use
  Company Number: NL-PFIZER INC-2012231091

PATIENT
  Age: 63 Year
  Sex: Female
  Weight: 85 kg

DRUGS (8)
  1. GENOTROPIN [Suspect]
     Dosage: 0.3 mg, 7/wk
     Route: 058
     Dates: start: 20100211
  2. TRIMEPRAZINE [Concomitant]
     Indication: HYPERSENSITIVITY
     Dosage: UNK
     Dates: start: 19940615
  3. DESLORATADINE [Concomitant]
     Indication: HYPERSENSITIVITY
     Dosage: UNK
     Dates: start: 20000615
  4. HYDROCHLOROTHIAZIDE [Concomitant]
     Indication: URINARY RETENTION
     Dosage: UNK
     Dates: start: 20000615
  5. DURETIC [Concomitant]
     Dosage: UNK
     Dates: start: 20001115
  6. AERIUS [Concomitant]
     Indication: RHINITIS ALLERGIC
     Dosage: UNK
     Dates: start: 20020131
  7. ROFECOXIB [Concomitant]
     Indication: OSTEOARTHRITIS
     Dosage: UNK
     Dates: start: 20031122
  8. HYDROCORTISONE [Concomitant]
     Indication: BLOOD CORTICOTROPHIN DECREASED
     Dosage: UNK
     Dates: start: 20090115

REACTIONS (1)
  - Breast cancer [Recovered/Resolved]
